FAERS Safety Report 26184692 (Version 1)
Quarter: 2025Q4

REPORT INFORMATION
  Report Type: Spontaneous
  Country: US (occurrence: US)
  Receive Date: 20251222
  Receipt Date: 20251222
  Transmission Date: 20260118
  Serious: Yes (Other)
  Sender: STRIDES
  Company Number: US-STRIDES ARCOLAB LIMITED-2025SP015736

PATIENT
  Age: 39 Year
  Sex: Female

DRUGS (1)
  1. MINOCYCLINE [Suspect]
     Active Substance: MINOCYCLINE HYDROCHLORIDE
     Indication: Hidradenitis
     Dosage: UNK
     Route: 065

REACTIONS (3)
  - Cerebral venous sinus thrombosis [Recovered/Resolved]
  - Idiopathic intracranial hypertension [Recovered/Resolved]
  - Off label use [Unknown]
